FAERS Safety Report 15461290 (Version 1)
Quarter: 2018Q4

REPORT INFORMATION
  Report Type: Spontaneous
  Country: US (occurrence: US)
  Receive Date: 20181003
  Receipt Date: 20181003
  Transmission Date: 20190204
  Serious: No
  Sender: FDA-Public Use
  Company Number: US-PFIZER INC-2018313916

PATIENT
  Age: 23 Year
  Sex: Male

DRUGS (1)
  1. XELJANZ [Suspect]
     Active Substance: TOFACITINIB CITRATE
     Dosage: 20 MG, DAILY
     Dates: start: 201808

REACTIONS (4)
  - Weight decreased [Unknown]
  - Condition aggravated [Unknown]
  - Product prescribing error [Unknown]
  - Localised infection [Unknown]

NARRATIVE: CASE EVENT DATE: 20180831
